FAERS Safety Report 17823939 (Version 1)
Quarter: 2020Q2

REPORT INFORMATION
  Report Type: Report from Study
  Country: US (occurrence: US)
  Receive Date: 20200526
  Receipt Date: 20200526
  Transmission Date: 20200714
  Serious: Yes (Hospitalization, Other)
  Sender: FDA-Public Use
  Company Number: US-GILEAD-2020-0468394

PATIENT
  Sex: Female

DRUGS (40)
  1. AZTREONAM LYSINE [Suspect]
     Active Substance: AZTREONAM LYSINE
     Indication: CYSTIC FIBROSIS LUNG
     Dosage: INHALE 75MG VIA NEB TID 28 DAYS ON 28 DAYS OFF
     Route: 055
     Dates: start: 20191002
  2. PAIN + FEVER [Concomitant]
  3. PREDNISOLONE. [Concomitant]
     Active Substance: PREDNISOLONE
  4. SUCRALFATE. [Concomitant]
     Active Substance: SUCRALFATE
  5. CETIRIZINE [Concomitant]
     Active Substance: CETIRIZINE HYDROCHLORIDE
  6. CHILDREN MULTIVITAMINS [Concomitant]
  7. PEDIASURE [NUTRIENTS NOS] [Concomitant]
  8. PERTZYE [Concomitant]
     Active Substance: PANCRELIPASE AMYLASE\PANCRELIPASE LIPASE\PANCRELIPASE PROTEASE
  9. SALINE NASAL MIST [Concomitant]
  10. CIPROFLOXACIN. [Concomitant]
     Active Substance: CIPROFLOXACIN
  11. MONTELUKAST [Concomitant]
     Active Substance: MONTELUKAST SODIUM
  12. POLYETHYLENE GLYCOL [MACROGOL] [Concomitant]
  13. SODIUM CHLORIDE. [Concomitant]
     Active Substance: SODIUM CHLORIDE
  14. VITAMIN D3 [Concomitant]
     Active Substance: CHOLECALCIFEROL
  15. LORATADINE. [Concomitant]
     Active Substance: LORATADINE
  16. AQUADEKS PEDIATRIC LIQUID [Concomitant]
     Active Substance: MINERALS\VITAMINS
  17. BETHKIS [Concomitant]
     Active Substance: TOBRAMYCIN
  18. ENSURE CLEAR [Concomitant]
  19. PREDNISONE. [Concomitant]
     Active Substance: PREDNISONE
  20. PROMETHAZINE [Concomitant]
     Active Substance: PROMETHAZINE HYDROCHLORIDE
  21. PULMOZYME [Concomitant]
     Active Substance: DORNASE ALFA
  22. SMZ-TMP [Concomitant]
     Active Substance: SULFAMETHOXAZOLE\TRIMETHOPRIM
  23. ALBUTEROL HFA [Concomitant]
     Active Substance: ALBUTEROL SULFATE
  24. ERYTHROMED [Concomitant]
  25. FLUTICASONE. [Concomitant]
     Active Substance: FLUTICASONE
  26. PROVENTIL HFA [Concomitant]
     Active Substance: ALBUTEROL SULFATE
  27. ACETAMINOPHEN. [Concomitant]
     Active Substance: ACETAMINOPHEN
  28. FAMOTIDINE. [Concomitant]
     Active Substance: FAMOTIDINE
  29. HYOSCYAMINE. [Concomitant]
     Active Substance: HYOSCYAMINE
  30. MEGESTROL ACETATE. [Concomitant]
     Active Substance: MEGESTROL ACETATE
  31. ONDANSETRON [Concomitant]
     Active Substance: ONDANSETRON
  32. SINGULAIR [Concomitant]
     Active Substance: MONTELUKAST SODIUM
  33. SULFATRIM [Concomitant]
     Active Substance: SULFAMETHOXAZOLE\TRIMETHOPRIM
  34. AZITHROMYCIN ANHYDROUS. [Concomitant]
     Active Substance: AZITHROMYCIN ANHYDROUS
  35. CULTURELLE [Concomitant]
     Active Substance: LACTOBACILLUS RHAMNOSUS
  36. IBUPROFEN. [Concomitant]
     Active Substance: IBUPROFEN
  37. PANTOPRAZOLE [Concomitant]
     Active Substance: PANTOPRAZOLE
  38. RANITIDINE. [Concomitant]
     Active Substance: RANITIDINE
  39. SMZ-TMP DS [Concomitant]
     Active Substance: SULFAMETHOXAZOLE\TRIMETHOPRIM
  40. WAL-TUSSIN [Concomitant]
     Active Substance: DEXTROMETHORPHAN HYDROBROMIDE

REACTIONS (1)
  - Cystic fibrosis respiratory infection suppression [Unknown]
